FAERS Safety Report 5151182-8 (Version None)
Quarter: 2006Q4

REPORT INFORMATION
  Report Type: 
  Country: None (occurrence: None)
  Receive Date: 20061114
  Receipt Date: 20061114
  Transmission Date: 20070319
  Serious: Yes (Life-Threatening)
  Sender: FDA-Public Use
  Company Number: None

PATIENT
  Age: 81 Year
  Sex: Female
  Weight: 100 kg

DRUGS (3)
  1. IMURAN [Suspect]
     Indication: AUTOIMMUNE HEPATITIS
     Dosage: 50MG  DAILY    PO
     Route: 048
     Dates: start: 20060501
  2. HYDROCHLOROTHIAZIDE [Concomitant]
  3. PREDNISONE TAB [Concomitant]

REACTIONS (2)
  - PANCREATIC PSEUDOCYST [None]
  - PANCREATITIS [None]
